FAERS Safety Report 8792021 (Version 1)
Quarter: 2012Q4

REPORT INFORMATION
  Report Type: Report from Study
  Country: US (occurrence: US)
  Receive Date: 20120918
  Receipt Date: 20120918
  Transmission Date: 20130627
  Serious: Yes (Hospitalization)
  Sender: FDA-Public Use
  Company Number: US-ABBOTT-12P-163-0934228-00

PATIENT
  Sex: Male
  Weight: 56.75 kg

DRUGS (6)
  1. HUMIRA 40 MG/0.8 ML PEN [Suspect]
     Indication: RHEUMATOID ARTHRITIS
     Route: 058
     Dates: start: 2009, end: 201203
  2. HUMIRA 40 MG/0.8 ML PEN [Suspect]
     Indication: CROHN^S DISEASE
     Route: 058
     Dates: start: 20120330, end: 20120330
  3. HUMIRA 40 MG/0.8 ML PEN [Suspect]
     Route: 058
     Dates: start: 20120413, end: 20120413
  4. HUMIRA 40 MG/0.8 ML PEN [Suspect]
     Route: 058
     Dates: start: 20120427
  5. VICODIN [Concomitant]
     Indication: CROHN^S DISEASE
     Dosage: 5/500 EVERY 10 DAYS AS NEEDED
  6. VICODIN [Concomitant]
     Indication: PAIN

REACTIONS (2)
  - Obstruction [Unknown]
  - Crohn^s disease [Recovered/Resolved]
